FAERS Safety Report 11408950 (Version 7)
Quarter: 2019Q2

REPORT INFORMATION
  Report Type: Report from Study
  Country: CA (occurrence: CA)
  Receive Date: 20150824
  Receipt Date: 20190521
  Transmission Date: 20190711
  Serious: Yes (Hospitalization, Other)
  Sender: FDA-Public Use
  Company Number: CA-ROCHE-1450100

PATIENT
  Age: 79 Year
  Sex: Female

DRUGS (29)
  1. RITUXAN [Suspect]
     Active Substance: RITUXIMAB
     Route: 042
     Dates: start: 20180305
  2. COLCHICINE. [Concomitant]
     Active Substance: COLCHICINE
  3. ATORVASTATIN [Concomitant]
     Active Substance: ATORVASTATIN
  4. RITUXAN [Suspect]
     Active Substance: RITUXIMAB
     Indication: RHEUMATOID ARTHRITIS
     Route: 042
     Dates: start: 20140813, end: 20151021
  5. VENTOLIN [Concomitant]
     Active Substance: ALBUTEROL SULFATE
  6. NORTRIPTYLINE [Concomitant]
     Active Substance: NORTRIPTYLINE
  7. RITUXAN [Suspect]
     Active Substance: RITUXIMAB
     Route: 042
     Dates: start: 20170824, end: 20170907
  8. CLONIDINE. [Concomitant]
     Active Substance: CLONIDINE
  9. LASIX [Concomitant]
     Active Substance: FUROSEMIDE
  10. RITUXAN [Suspect]
     Active Substance: RITUXIMAB
     Route: 042
     Dates: start: 20160722, end: 20170215
  11. ACETAMINOPHEN. [Concomitant]
     Active Substance: ACETAMINOPHEN
     Indication: PREMEDICATION
     Route: 048
     Dates: start: 20140813
  12. PROLIA [Concomitant]
     Active Substance: DENOSUMAB
  13. LOSARTAN. [Concomitant]
     Active Substance: LOSARTAN
  14. LIPITOR [Concomitant]
     Active Substance: ATORVASTATIN CALCIUM
  15. LAX-A-DAY [Concomitant]
  16. METHOTREXATE. [Concomitant]
     Active Substance: METHOTREXATE
  17. VOLTAREN [DICLOFENAC] [Concomitant]
     Active Substance: DICLOFENAC SODIUM
     Route: 047
  18. DIMENHYDRINATE. [Concomitant]
     Active Substance: DIMENHYDRINATE
  19. SULFASALAZINE. [Concomitant]
     Active Substance: SULFASALAZINE
  20. BENADRYL [Concomitant]
     Active Substance: DIPHENHYDRAMINE HYDROCHLORIDE
     Indication: PREMEDICATION
     Route: 048
     Dates: start: 20140813
  21. METHYLPREDNISOLONE. [Concomitant]
     Active Substance: METHYLPREDNISOLONE
     Indication: PREMEDICATION
     Route: 042
     Dates: start: 20140813
  22. PANTOLOC [PANTOPRAZOLE] [Concomitant]
     Active Substance: PANTOPRAZOLE SODIUM
  23. FUROSEMIDE. [Concomitant]
     Active Substance: FUROSEMIDE
  24. ADALAT [Concomitant]
     Active Substance: NIFEDIPINE
  25. FOLIC ACID. [Concomitant]
     Active Substance: FOLIC ACID
  26. HYDROCORTISONE. [Concomitant]
     Active Substance: HYDROCORTISONE
  27. SULFASALAZINE. [Concomitant]
     Active Substance: SULFASALAZINE
  28. TYLENOL [Concomitant]
     Active Substance: ACETAMINOPHEN
  29. DOCUSATE [Concomitant]
     Active Substance: DOCUSATE

REACTIONS (8)
  - Cardiac disorder [Unknown]
  - Abdominal hernia [Unknown]
  - Hernia [Not Recovered/Not Resolved]
  - Polyp [Unknown]
  - Cyst [Unknown]
  - Infusion related reaction [Recovered/Resolved]
  - Fall [Unknown]
  - Intervertebral disc protrusion [Unknown]

NARRATIVE: CASE EVENT DATE: 20140813
